FAERS Safety Report 7719055-1 (Version None)
Quarter: 2011Q3

REPORT INFORMATION
  Report Type: 
  Country: None (occurrence: None)
  Receive Date: 20110830
  Receipt Date: 20110824
  Transmission Date: 20111222
  Serious: Yes (Hospitalization)
  Sender: FDA-Public Use
  Company Number: CA-MERCK-1108USA03050

PATIENT
  Age: 63 Year
  Sex: Male

DRUGS (3)
  1. EFFEXOR [Suspect]
     Indication: PAIN
     Route: 048
     Dates: start: 20070801, end: 20110301
  2. JANUVIA [Suspect]
     Indication: BLOOD GLUCOSE INCREASED
     Route: 048
     Dates: start: 20110301
  3. EFFEXOR [Suspect]
     Indication: ANXIETY
     Route: 048
     Dates: start: 20070801, end: 20110301

REACTIONS (27)
  - ARTHRALGIA [None]
  - PANIC ATTACK [None]
  - NIGHTMARE [None]
  - WITHDRAWAL SYNDROME [None]
  - DIZZINESS [None]
  - BODY TEMPERATURE INCREASED [None]
  - TREMOR [None]
  - PALPITATIONS [None]
  - OEDEMA [None]
  - ABDOMINAL PAIN UPPER [None]
  - BLOOD GLUCOSE DECREASED [None]
  - ATRIAL FIBRILLATION [None]
  - NAUSEA [None]
  - DRY SKIN [None]
  - ANXIETY [None]
  - ABDOMINAL DISTENSION [None]
  - DYSPNOEA [None]
  - WEIGHT DECREASED [None]
  - VITAMIN B12 DECREASED [None]
  - CONSTIPATION [None]
  - PARAESTHESIA [None]
  - HYPOTONIA [None]
  - CRYING [None]
  - ABDOMINAL PAIN [None]
  - CHILLS [None]
  - HEADACHE [None]
  - FEAR [None]
